FAERS Safety Report 19401734 (Version 1)
Quarter: 2021Q2

REPORT INFORMATION
  Report Type: Spontaneous
  Country: US (occurrence: US)
  Receive Date: 20210611
  Receipt Date: 20210611
  Transmission Date: 20210717
  Serious: No
  Sender: FDA-Public Use
  Company Number: US-CYCLE PHARMACEUTICALS LTD-2021-CYC-000018

PATIENT

DRUGS (1)
  1. NITYR [Suspect]
     Active Substance: NITISINONE
     Indication: TYROSINAEMIA
     Dosage: 1.3 ML (2.5 MG) BY MOUTH BID
     Route: 048

REACTIONS (1)
  - Weight increased [Unknown]
